FAERS Safety Report 10637680 (Version 1)
Quarter: 2014Q4

REPORT INFORMATION
  Report Type: Spontaneous
  Country: US (occurrence: None)
  Receive Date: 20141204
  Receipt Date: 20141204
  Transmission Date: 20150529
  Serious: Yes (Death, Hospitalization, Other)
  Sender: FDA-Public Use
  Company Number: 2014COV00163

PATIENT
  Age: 62 Year
  Sex: Male
  Weight: 57 kg

DRUGS (5)
  1. PEMETREXED [Concomitant]
     Active Substance: PEMETREXED
  2. BLINDED TRIAL MEDICATION [Suspect]
     Active Substance: INVESTIGATIONAL PRODUCT
     Indication: NON-SMALL CELL LUNG CANCER
     Dates: start: 20130819, end: 20131116
  3. DILTIAZEM [Concomitant]
     Active Substance: DILTIAZEM
  4. METOPROLOL [Concomitant]
     Active Substance: METOPROLOL
  5. DIGOXIN (DIGOXIN) UNKNOWN [Suspect]
     Active Substance: DIGOXIN

REACTIONS (5)
  - Cardiac arrest [None]
  - Hyponatraemia [None]
  - Dyspnoea [None]
  - Superior vena cava syndrome [None]
  - Swelling face [None]

NARRATIVE: CASE EVENT DATE: 20131129
